FAERS Safety Report 23379068 (Version 2)
Quarter: 2024Q1

REPORT INFORMATION
  Report Type: Spontaneous
  Country: ES (occurrence: ES)
  Receive Date: 20240108
  Receipt Date: 20240112
  Transmission Date: 20240410
  Serious: Yes (Other)
  Sender: FDA-Public Use
  Company Number: ES-GILEAD-2024-0657260

PATIENT
  Age: 41 Year
  Sex: Female

DRUGS (10)
  1. TRODELVY [Suspect]
     Active Substance: SACITUZUMAB GOVITECAN-HZIY
     Indication: Breast neoplasm
     Dosage: 10 MG/KG C1D1 AND D8 UNKNOWN DATE
     Route: 065
     Dates: start: 202309
  2. TRODELVY [Suspect]
     Active Substance: SACITUZUMAB GOVITECAN-HZIY
     Dosage: C2 D1 AT 75%
     Route: 065
  3. GOLIMUMAB [Concomitant]
     Active Substance: GOLIMUMAB
  4. TOPIRAMATE [Concomitant]
     Active Substance: TOPIRAMATE
     Dosage: 200 MG: 1-0-1
  5. QUETIAPINE [Concomitant]
     Active Substance: QUETIAPINE
     Dosage: 50 MG 0-0-2
  6. VENLAFAXINE [Concomitant]
     Active Substance: VENLAFAXINE HYDROCHLORIDE
     Dosage: 150MG 1-1-0
  7. LORAZEPAM [Concomitant]
     Active Substance: LORAZEPAM
     Dosage: 1MG 0-0-1
  8. CLONAZEPAM [Concomitant]
     Active Substance: CLONAZEPAM
     Dosage: 5 DROPS, IF ANXIOUS 16 AND 14 YEARS
  9. PACLITAXEL [Concomitant]
     Active Substance: PACLITAXEL
     Dosage: 80MG/M2
     Dates: start: 20230609
  10. PACLITAXEL [Concomitant]
     Active Substance: PACLITAXEL
     Dosage: UNK
     Dates: start: 202309

REACTIONS (11)
  - Immunotoxicity [Unknown]
  - Asthenia [Unknown]
  - Myalgia [Unknown]
  - Diarrhoea [Unknown]
  - Nausea [Unknown]
  - Mucosal inflammation [Unknown]
  - Dry skin [Unknown]
  - Xerophthalmia [Unknown]
  - Rash [Unknown]
  - Pruritus [Unknown]
  - Alopecia [Unknown]
